FAERS Safety Report 13084078 (Version 2)
Quarter: 2017Q1

REPORT INFORMATION
  Report Type: Spontaneous
  Country: CN (occurrence: CN)
  Receive Date: 20170104
  Receipt Date: 20170118
  Transmission Date: 20170428
  Serious: Yes (Hospitalization)
  Sender: FDA-Public Use
  Company Number: CN-ASTRAZENECA-2016SF33263

PATIENT
  Age: 70 Year
  Sex: Female

DRUGS (1)
  1. IRESSA [Suspect]
     Active Substance: GEFITINIB
     Indication: NON-SMALL CELL LUNG CANCER
     Route: 048
     Dates: end: 201612

REACTIONS (6)
  - Cough [Recovered/Resolved]
  - Dyspnoea [Recovered/Resolved]
  - Sputum increased [Recovered/Resolved]
  - Abasia [Recovering/Resolving]
  - Drug resistance [Unknown]
  - Malaise [Unknown]

NARRATIVE: CASE EVENT DATE: 201611
